FAERS Safety Report 13962418 (Version 2)
Quarter: 2018Q3

REPORT INFORMATION
  Report Type: Report from Study
  Country: DE (occurrence: DE)
  Receive Date: 20170913
  Receipt Date: 20180814
  Transmission Date: 20181010
  Serious: Yes (Hospitalization, Other)
  Sender: FDA-Public Use
  Company Number: DE-ROCHE-1992556

PATIENT
  Age: 78 Year
  Sex: Male

DRUGS (13)
  1. BUDESONID [Concomitant]
     Active Substance: BUDESONIDE
  2. TORASEMID [Concomitant]
     Active Substance: TORSEMIDE
  3. BISOPROLOL [Concomitant]
     Active Substance: BISOPROLOL
  4. OMEPRAZOL [Concomitant]
     Active Substance: OMEPRAZOLE
  5. DRONEDARONE [Concomitant]
     Active Substance: DRONEDARONE
  6. ACC LONG [Concomitant]
     Active Substance: ACETYLCYSTEINE
  7. LOSARTAN. [Concomitant]
     Active Substance: LOSARTAN
  8. ALENDRONIC ACID [Concomitant]
     Active Substance: ALENDRONIC ACID
  9. DEKRISTOL [Concomitant]
     Active Substance: CHOLECALCIFEROL
  10. SPIRIVA [Concomitant]
     Active Substance: TIOTROPIUM BROMIDE MONOHYDRATE
  11. BERODUAL [Concomitant]
     Active Substance: FENOTEROL HYDROBROMIDE\IPRATROPIUM BROMIDE
  12. RITUXIMAB. [Suspect]
     Active Substance: RITUXIMAB
     Indication: RHEUMATOID ARTHRITIS
     Dosage: LAST DOCUMENTED RITUXIMAB DOSE WAS GIVEN ON 25/JUN/2015?LAST DOCUMENTED RITUXIMAB CYCLE WAS GIVEN ON
     Route: 065
     Dates: end: 20151210
  13. MARCUMAR [Concomitant]
     Active Substance: PHENPROCOUMON

REACTIONS (2)
  - Postoperative wound complication [Recovered/Resolved]
  - Squamous cell carcinoma of skin [Recovered/Resolved]

NARRATIVE: CASE EVENT DATE: 201511
